FAERS Safety Report 7424815-0 (Version None)
Quarter: 2011Q2

REPORT INFORMATION
  Report Type: 
  Country: None (occurrence: None)
  Receive Date: 20110419
  Receipt Date: 20101109
  Transmission Date: 20111010
  Serious: No
  Sender: FDA-Public Use
  Company Number: US-ABBOTT-10P-163-0684421-00

PATIENT
  Sex: Female
  Weight: 33.142 kg

DRUGS (1)
  1. LUPRON DEPOT-PED [Suspect]
     Indication: PRECOCIOUS PUBERTY
     Dates: start: 20101027

REACTIONS (3)
  - VAGINAL HAEMORRHAGE [None]
  - MUSCLE SPASMS [None]
  - BACK PAIN [None]
